FAERS Safety Report 6679931-8 (Version None)
Quarter: 2010Q2

REPORT INFORMATION
  Report Type: 
  Country: None (occurrence: None)
  Receive Date: 20100409
  Receipt Date: 20100402
  Transmission Date: 20101027
  Serious: Yes (Other)
  Sender: FDA-Public Use
  Company Number: 10-000487

PATIENT
  Sex: Male

DRUGS (1)
  1. DORYX [Suspect]
     Dosage: ORAL
     Route: 048
     Dates: start: 20100101

REACTIONS (1)
  - GINGIVITIS ULCERATIVE [None]
